FAERS Safety Report 23822596 (Version 3)
Quarter: 2024Q2

REPORT INFORMATION
  Report Type: Spontaneous
  Country: US (occurrence: None)
  Receive Date: 20240506
  Receipt Date: 20240620
  Transmission Date: 20240716
  Serious: No
  Sender: FDA-Public Use
  Company Number: 2024A100854

PATIENT
  Age: 304 Month
  Sex: Male

DRUGS (1)
  1. BUDESONIDE\FORMOTEROL [Suspect]
     Active Substance: BUDESONIDE\FORMOTEROL
     Indication: Asthma
     Dosage: 80, TWO TIMES A DAY
     Route: 055

REACTIONS (4)
  - Chest pain [Recovered/Resolved]
  - Accidental overdose [Recovered/Resolved]
  - Device delivery system issue [Unknown]
  - Wrong technique in device usage process [Unknown]

NARRATIVE: CASE EVENT DATE: 20240401
